FAERS Safety Report 5225334-2 (Version None)
Quarter: 2007Q1

REPORT INFORMATION
  Report Type: 
  Country: None (occurrence: None)
  Receive Date: 20070131
  Receipt Date: 20070118
  Transmission Date: 20070707
  Serious: Yes (Life-Threatening)
  Sender: FDA-Public Use
  Company Number: JP-PFIZER INC-2006090583

PATIENT
  Sex: Male

DRUGS (5)
  1. ZYVOX [Suspect]
     Indication: STAPHYLOCOCCAL INFECTION
     Route: 042
     Dates: start: 20060704, end: 20060713
  2. ZYVOX [Suspect]
     Indication: CELLULITIS
     Dates: start: 20061113, end: 20061124
  3. RINGER'S [Concomitant]
     Route: 042
     Dates: start: 20060704, end: 20060713
  4. ASPARTATE POTASSIUM [Concomitant]
     Indication: HYPOKALAEMIA
     Route: 042
     Dates: start: 20060704, end: 20060713
  5. ALL OTHER THERAPEUTIC PRODUCTS [Concomitant]
     Indication: DECUBITUS ULCER
     Route: 062
     Dates: start: 20060704, end: 20060713

REACTIONS (1)
  - ACUTE MYOCARDIAL INFARCTION [None]
